FAERS Safety Report 7769982-4 (Version None)
Quarter: 2011Q3

REPORT INFORMATION
  Report Type: 
  Country: None (occurrence: None)
  Receive Date: 20110922
  Receipt Date: 20110918
  Transmission Date: 20111222
  Serious: Yes (Hospitalization)
  Sender: FDA-Public Use
  Company Number: GR-ROCHE-803428

PATIENT
  Age: 61 Year
  Sex: Male
  Weight: 85 kg

DRUGS (1)
  1. VEMURAFENIB [Suspect]
     Dosage: LAST DOSE PRIOR TO SAE: 15 SEP 2011.  TEMPORARILY INTERRUPTED.
     Route: 048
     Dates: start: 20110912, end: 20110915

REACTIONS (1)
  - ANAEMIA [None]
